FAERS Safety Report 9363126 (Version 1)
Quarter: 2013Q2

REPORT INFORMATION
  Report Type: Spontaneous
  Country: US (occurrence: US)
  Receive Date: 20130624
  Receipt Date: 20130624
  Transmission Date: 20140414
  Serious: No
  Sender: FDA-Public Use
  Company Number: US-009507513-1306USA010645

PATIENT
  Age: 88 Year
  Sex: Female

DRUGS (3)
  1. MIRTAZAPINE [Suspect]
     Indication: ANXIETY
     Dosage: 45 MG, HS
     Route: 048
  2. SYNTHROID [Concomitant]
     Dosage: UNK
  3. [COMPOSITION UNSPECIFIED] [Concomitant]
     Dosage: UNK

REACTIONS (1)
  - Drug eruption [Not Recovered/Not Resolved]
